FAERS Safety Report 17997499 (Version 2)
Quarter: 2020Q3

REPORT INFORMATION
  Report Type: Report from Study
  Country: US (occurrence: US)
  Receive Date: 20200709
  Receipt Date: 20200724
  Transmission Date: 20201103
  Serious: Yes (Death, Hospitalization, Other)
  Sender: FDA-Public Use
  Company Number: US-GILEAD-2020-0479637

PATIENT
  Sex: Male

DRUGS (1)
  1. AMBRISENTAN [Suspect]
     Active Substance: AMBRISENTAN
     Indication: PULMONARY ARTERIAL HYPERTENSION
     Dosage: 10 MG, QD
     Route: 065
     Dates: start: 20160412

REACTIONS (5)
  - Cholecystitis infective [Fatal]
  - Cardiac arrest [Unknown]
  - Internal haemorrhage [Unknown]
  - Sepsis [Fatal]
  - Large intestine perforation [Unknown]
